FAERS Safety Report 10238425 (Version 1)
Quarter: 2014Q2

REPORT INFORMATION
  Report Type: Spontaneous
  Country: US (occurrence: None)
  Receive Date: 20140613
  Receipt Date: 20140613
  Transmission Date: 20141212
  Serious: No
  Sender: FDA-Public Use
  Company Number: None

PATIENT
  Age: 45 Year
  Sex: Male

DRUGS (1)
  1. IBUPROFEN [Suspect]
     Indication: ANALGESIC THERAPY
     Route: 048
     Dates: start: 20140528, end: 20140611

REACTIONS (2)
  - Therapeutic response decreased [None]
  - Product measured potency issue [None]
